FAERS Safety Report 4545552-6 (Version None)
Quarter: 2005Q1

REPORT INFORMATION
  Report Type: 
  Country: None (occurrence: None)
  Receive Date: 20050105
  Receipt Date: 20041118
  Transmission Date: 20050727
  Serious: No
  Sender: FDA-Public Use
  Company Number: US-MERCK-0411USA03308

PATIENT
  Age: 64 Year
  Sex: Male
  Weight: 74 kg

DRUGS (7)
  1. VIOXX [Suspect]
     Indication: OSTEOARTHRITIS
     Route: 048
     Dates: start: 20030818, end: 20041001
  2. VIOXX [Suspect]
     Indication: COSTOCHONDRITIS
     Route: 048
     Dates: start: 20030818, end: 20041001
  3. LOPRESSOR [Concomitant]
     Route: 065
  4. CILOSTAZOL [Concomitant]
     Route: 065
  5. LIPITOR [Concomitant]
     Route: 065
  6. MOBIC [Concomitant]
     Route: 065
  7. VERAPAMIL [Concomitant]
     Route: 065

REACTIONS (1)
  - PERIPHERAL VASCULAR DISORDER [None]
